FAERS Safety Report 5563898-X (Version None)
Quarter: 2007Q4

REPORT INFORMATION
  Report Type: 
  Country: None (occurrence: None)
  Receive Date: 20071217
  Receipt Date: 20070918
  Transmission Date: 20080405
  Serious: No
  Sender: FDA-Public Use
  Company Number: US-ASTRAZENECA-2007UW21972

PATIENT
  Age: 59 Year
  Sex: Female
  Weight: 79.4 kg

DRUGS (7)
  1. CRESTOR [Suspect]
     Route: 048
     Dates: start: 20070601
  2. ATENOLOL [Concomitant]
  3. PHENYTOIN [Concomitant]
  4. HYDROCHLOROTHIAZIDE [Concomitant]
  5. VITAMIN CAP [Concomitant]
  6. ASPIRIN [Concomitant]
  7. OMEGA-3 [Concomitant]

REACTIONS (2)
  - BACK PAIN [None]
  - BLOOD TRIGLYCERIDES INCREASED [None]
